APPROVED DRUG PRODUCT: CAPREOMYCIN SULFATE
Active Ingredient: CAPREOMYCIN SULFATE
Strength: EQ 1GM BASE/VIAL
Dosage Form/Route: INJECTABLE;INJECTION
Application: A204796 | Product #001
Applicant: HISUN PHARMACEUTICAL HANGZHOU CO LTD
Approved: Oct 18, 2018 | RLD: No | RS: No | Type: DISCN